FAERS Safety Report 6977045-0 (Version None)
Quarter: 2010Q3

REPORT INFORMATION
  Report Type: 
  Country: None (occurrence: None)
  Receive Date: 20100910
  Receipt Date: 20100831
  Transmission Date: 20110219
  Serious: Yes (Life-Threatening, Hospitalization, Other)
  Sender: FDA-Public Use
  Company Number: CH-WYE-G06608910

PATIENT
  Age: 71 Year
  Sex: Female

DRUGS (12)
  1. ENBREL [Suspect]
     Indication: RHEUMATOID ARTHRITIS
     Dosage: DOSE AND FREQUENCY UNKNOWN
  2. FOLVITE [Concomitant]
  3. METHOTREXATE [Concomitant]
  4. TOREM [Concomitant]
     Dosage: UNKNOWN DOSE WEEKLY
  5. COZAAR [Concomitant]
     Dosage: 50/12.5 MG TWICE DAILY
  6. CONCOR PLUS [Concomitant]
     Dosage: UNKNOWN DOSE TWICE DAILY
  7. PRAVASTATIN SODIUM [Concomitant]
  8. OMEPRAZOLE [Concomitant]
  9. AMIODARONE HCL [Suspect]
     Indication: ATRIAL FIBRILLATION
     Dosage: GIVEN IN MAR-2010, DOSE AND FREQUENCY UNKNOWN
     Route: 042
  10. AMIODARONE HCL [Suspect]
     Indication: VENTRICULAR TACHYCARDIA
  11. AMIODARONE HCL [Suspect]
     Indication: CARDIAC FAILURE
  12. MARCUMAR [Concomitant]
     Dosage: AS REQUIRED

REACTIONS (13)
  - ATRIAL FIBRILLATION [None]
  - CARDIAC FAILURE [None]
  - CARDIOGENIC SHOCK [None]
  - CARDIOMYOPATHY [None]
  - CONDITION AGGRAVATED [None]
  - CONGESTIVE CARDIOMYOPATHY [None]
  - ELECTROCARDIOGRAM QT PROLONGED [None]
  - NAUSEA [None]
  - NEPHROLITHIASIS [None]
  - RHEUMATOID ARTHRITIS [None]
  - STRESS CARDIOMYOPATHY [None]
  - VENTRICULAR TACHYCARDIA [None]
  - VOMITING [None]
